FAERS Safety Report 7434477-4 (Version None)
Quarter: 2011Q2

REPORT INFORMATION
  Report Type: 
  Country: None (occurrence: None)
  Receive Date: 20110415
  Receipt Date: 20110404
  Transmission Date: 20111010
  Serious: Yes (Hospitalization)
  Sender: FDA-Public Use
  Company Number: 028350

PATIENT
  Sex: Female
  Weight: 57 kg

DRUGS (4)
  1. CORTISONE [Concomitant]
  2. KEPPRA [Suspect]
     Indication: PARTIAL SEIZURES
     Dosage: 1500 MG BID, 1500-01500 MG, ORAL (DOSE REDUCED)
     Route: 048
     Dates: start: 20100601, end: 20110301
  3. KEPPRA [Suspect]
     Indication: PARTIAL SEIZURES
     Dosage: 1500 MG BID, 1500-01500 MG, ORAL (DOSE REDUCED)
     Route: 048
     Dates: start: 20110101
  4. CITALOPRAM HYDROBROMIDE [Concomitant]

REACTIONS (8)
  - ASTHENIA [None]
  - HALLUCINATIONS, MIXED [None]
  - MEMORY IMPAIRMENT [None]
  - PARKINSONIAN REST TREMOR [None]
  - GAIT DISTURBANCE [None]
  - PARKINSONIAN GAIT [None]
  - SOMNOLENCE [None]
  - DISTURBANCE IN ATTENTION [None]
